FAERS Safety Report 7247086-7 (Version None)
Quarter: 2011Q1

REPORT INFORMATION
  Report Type: 
  Country: None (occurrence: None)
  Receive Date: 20110127
  Receipt Date: 20100113
  Transmission Date: 20110831
  Serious: No
  Sender: FDA-Public Use
  Company Number: US-BAUSCH-2010BL000225

PATIENT
  Age: 84 Year
  Sex: Male

DRUGS (4)
  1. SERTRALINE HYDROCHLORIDE [Concomitant]
     Indication: DEPRESSION
  2. RANITIDINE [Concomitant]
     Indication: GASTROOESOPHAGEAL REFLUX DISEASE
  3. MUCINEX [Concomitant]
     Indication: DYSPHONIA
  4. ALAWAY [Suspect]
     Indication: EYE PRURITUS
     Route: 047
     Dates: start: 20100111, end: 20100114

REACTIONS (1)
  - DIZZINESS [None]
